FAERS Safety Report 7270217-X (Version None)
Quarter: 2011Q1

REPORT INFORMATION
  Report Type: 
  Country: None (occurrence: None)
  Receive Date: 20110125
  Receipt Date: 20110113
  Transmission Date: 20110831
  Serious: Yes (Other)
  Sender: FDA-Public Use
  Company Number: 025431

PATIENT
  Age: 47 Year
  Sex: Male

DRUGS (3)
  1. NEUPRO [Suspect]
     Indication: PARKINSON'S DISEASE
     Dosage: (6 MG QD TRANSDERMAL)
     Route: 062
     Dates: start: 20100517, end: 20100527
  2. OMEPRAZOLE [Concomitant]
  3. AZILECT [Suspect]
     Indication: PARKINSON'S DISEASE
     Dosage: (30 MG QD ORAL)
     Route: 048
     Dates: start: 20100222

REACTIONS (5)
  - DIZZINESS [None]
  - ARTHRALGIA [None]
  - PARAESTHESIA [None]
  - CHEST DISCOMFORT [None]
  - DYSPHAGIA [None]
